FAERS Safety Report 7422012-6 (Version None)
Quarter: 2011Q2

REPORT INFORMATION
  Report Type: 
  Country: None (occurrence: None)
  Receive Date: 20110418
  Receipt Date: 20110414
  Transmission Date: 20111010
  Serious: Yes (Death)
  Sender: FDA-Public Use
  Company Number: US-ASTRAZENECA-2011SE21508

PATIENT
  Sex: Male

DRUGS (6)
  1. SEROQUEL [Suspect]
     Indication: ANXIETY
     Route: 048
     Dates: end: 20081101
  2. SEROQUEL [Suspect]
     Dosage: 25 MG TWICE DAILY AND 50 MG AT BEDTIME
     Route: 048
     Dates: start: 20081101, end: 20090101
  3. VICODIN [Concomitant]
     Dosage: EVERY 8 HOUR
  4. SEROQUEL [Suspect]
     Indication: SLEEP DISORDER
     Route: 048
     Dates: end: 20081101
  5. SEROQUEL [Suspect]
     Dosage: 25 MG TWICE DAILY AND 50 MG AT BEDTIME
     Route: 048
     Dates: start: 20081101, end: 20090101
  6. HALDOL [Concomitant]
     Dosage: AS REQUIRED

REACTIONS (6)
  - MYOCARDIAL INFARCTION [None]
  - THERAPEUTIC RESPONSE UNEXPECTED [None]
  - GAIT DISTURBANCE [None]
  - STUPOR [None]
  - NO ADVERSE EVENT [None]
  - OFF LABEL USE [None]
